FAERS Safety Report 16972688 (Version 1)
Quarter: 2019Q4

REPORT INFORMATION
  Report Type: Spontaneous
  Country: US (occurrence: US)
  Receive Date: 20191030
  Receipt Date: 20191030
  Transmission Date: 20200122
  Serious: No
  Sender: FDA-Public Use
  Company Number: US-JNJFOC-20191034375

PATIENT
  Sex: Female
  Weight: 93.07 kg

DRUGS (1)
  1. ZYRTEC [Suspect]
     Active Substance: CETIRIZINE HYDROCHLORIDE
     Indication: PRODUCT USED FOR UNKNOWN INDICATION
     Dosage: 3-4 TABS PER DAY DAILY?LAST DATE OF DRUG ADMINISTRATION: 18-OCT-2019
     Route: 048
     Dates: start: 20161018

REACTIONS (2)
  - Off label use [Unknown]
  - Overdose [Unknown]
